FAERS Safety Report 5530811-0 (Version None)
Quarter: 2007Q4

REPORT INFORMATION
  Report Type: 
  Country: None (occurrence: None)
  Receive Date: 20071130
  Receipt Date: 20071120
  Transmission Date: 20080405
  Serious: Yes (Life-Threatening, Other)
  Sender: FDA-Public Use
  Company Number: US-PURDUE-USA_2007_0027834

PATIENT
  Sex: Female

DRUGS (1)
  1. OXYCONTIN [Suspect]
     Indication: PAIN
     Dosage: 80 MG, SEE TEXT

REACTIONS (23)
  - ALVEOLAR OSTEITIS [None]
  - AMNESIA [None]
  - ATTENTION DEFICIT/HYPERACTIVITY DISORDER [None]
  - BIPOLAR DISORDER [None]
  - BRUXISM [None]
  - DEHYDRATION [None]
  - DEPRESSION [None]
  - DRUG DEPENDENCE [None]
  - DRUG TOLERANCE [None]
  - FLAT AFFECT [None]
  - INSOMNIA [None]
  - LEARNING DISORDER [None]
  - NIGHTMARE [None]
  - PERSONALITY CHANGE [None]
  - POST CONCUSSION SYNDROME [None]
  - SENSORY LOSS [None]
  - SHORT-BOWEL SYNDROME [None]
  - SMALL INTESTINAL OBSTRUCTION [None]
  - SOCIAL AVOIDANT BEHAVIOUR [None]
  - SUICIDE ATTEMPT [None]
  - THERMAL BURN [None]
  - THINKING ABNORMAL [None]
  - TOOTH INJURY [None]
